FAERS Safety Report 9404084 (Version 1)
Quarter: 2013Q3

REPORT INFORMATION
  Report Type: Spontaneous
  Country: DE (occurrence: None)
  Receive Date: 20130708
  Receipt Date: 20130708
  Transmission Date: 20140515
  Serious: Yes (Death)
  Sender: FDA-Public Use
  Company Number: 2013036715

PATIENT
  Age: 10 Year
  Sex: Female

DRUGS (4)
  1. IVIG (IMMUNE GLOBULIN INTRAVENOUS (HUMAN) 10% LIQUID) [Suspect]
     Indication: METAPNEUMOVIRUS INFECTION
  2. IVIG (IMMUNE GLOBULIN INTRAVENOUS (HUMAN) 10% LIQUID) [Suspect]
     Indication: STEM CELL TRANSPLANT
  3. RIBAVIRIN (RIBAVIRIN) [Concomitant]
  4. METHYLPREDNISOLONE (METHYLPREDNISOLONE) [Concomitant]

REACTIONS (3)
  - Drug ineffective for unapproved indication [None]
  - Hypercapnia [None]
  - Respiratory disorder [None]
